FAERS Safety Report 24766601 (Version 1)
Quarter: 2024Q4

REPORT INFORMATION
  Report Type: Spontaneous
  Country: DE (occurrence: DE)
  Receive Date: 20241223
  Receipt Date: 20241223
  Transmission Date: 20250115
  Serious: Yes (Hospitalization, Other)
  Sender: FERRING
  Company Number: None

PATIENT

DRUGS (1)
  1. PICOPREP [Suspect]
     Active Substance: ANHYDROUS CITRIC ACID\MAGNESIUM OXIDE\SODIUM PICOSULFATE
     Indication: Bowel preparation
     Dosage: 1 DOSAGE FORM; TAKEN ACCORDING TO THE PACKAGE LEAFLET AND DOCTOR^S PRESCRIPTION 1 BAG
     Route: 048
     Dates: start: 20241210, end: 20241210

REACTIONS (16)
  - Exophthalmos [Recovering/Resolving]
  - Unresponsive to stimuli [Recovering/Resolving]
  - Generalised tonic-clonic seizure [Recovered/Resolved]
  - Altered state of consciousness [Recovered/Resolved]
  - Altered state of consciousness [Recovered/Resolved]
  - Tongue biting [Recovering/Resolving]
  - Haematoma [Unknown]
  - Dyspnoea [Recovering/Resolving]
  - Rales [Recovering/Resolving]
  - Muscle twitching [Recovering/Resolving]
  - Musculoskeletal stiffness [Recovering/Resolving]
  - Tongue injury [Recovering/Resolving]
  - Amnesia [Recovering/Resolving]
  - Myalgia [Recovering/Resolving]
  - Limb injury [Recovering/Resolving]
  - Product prescribing error [Recovered/Resolved]

NARRATIVE: CASE EVENT DATE: 20241210
